FAERS Safety Report 7782738-1 (Version None)
Quarter: 2011Q3

REPORT INFORMATION
  Report Type: 
  Country: None (occurrence: None)
  Receive Date: 20110928
  Receipt Date: 20110922
  Transmission Date: 20111222
  Serious: Yes (Disabling)
  Sender: FDA-Public Use
  Company Number: DE-PFIZER INC-2011225034

PATIENT
  Age: 41 Year
  Sex: Male
  Weight: 76 kg

DRUGS (1)
  1. GABAPENTIN [Suspect]
     Indication: NEURALGIA
     Dosage: 400 MG, 3X/DAY
     Route: 048
     Dates: start: 20110119

REACTIONS (6)
  - SLEEP DISORDER [None]
  - ANXIETY [None]
  - ERECTILE DYSFUNCTION [None]
  - SUICIDAL IDEATION [None]
  - DEPRESSION [None]
  - DIZZINESS [None]
